FAERS Safety Report 10393267 (Version 1)
Quarter: 2014Q3

REPORT INFORMATION
  Report Type: Spontaneous
  Country: ES (occurrence: None)
  Receive Date: 20140815
  Receipt Date: 20140815
  Transmission Date: 20150326
  Serious: Yes (Other)
  Sender: FDA-Public Use
  Company Number: 2014ES01020

PATIENT
  Age: 60 Year
  Sex: Male

DRUGS (2)
  1. CARBOPLATIN. [Suspect]
     Active Substance: CARBOPLATIN
     Indication: NEOPLASM
     Dosage: AUC3, MEDIAN DOSE INTENSITY 57 MG/WEEK, 1 H I.V. INFUSION ON DAY 1 Q3WK
     Route: 042
  2. ZALYPSIS [Suspect]
     Active Substance: INVESTIGATIONAL PRODUCT
     Indication: NEOPLASM MALIGNANT
     Dosage: 2.0 MG/M2, MEDIAN DOSE INTENSITY 0.67 MG/M2/WEEK, 1H I.V. INFUSION ON DAY 1 Q3WK
     Route: 042

REACTIONS (2)
  - Neutropenia [None]
  - Ejection fraction decreased [None]
